FAERS Safety Report 18187148 (Version 1)
Quarter: 2020Q3

REPORT INFORMATION
  Report Type: Spontaneous
  Country: US (occurrence: US)
  Receive Date: 20200824
  Receipt Date: 20200824
  Transmission Date: 20201103
  Serious: No
  Sender: FDA-Public Use
  Company Number: None

PATIENT
  Sex: Male

DRUGS (2)
  1. TEMOZOLOMIDE  250MG  SUN PHARMACEUTICAL [Suspect]
     Active Substance: TEMOZOLOMIDE
     Indication: CHOLANGIOCARCINOMA
     Route: 048
     Dates: start: 202006
  2. CAPECITABINE 500MG  NOVADOZ PHARMACEUTICALS [Suspect]
     Active Substance: CAPECITABINE
     Indication: CHOLANGIOCARCINOMA
     Dosage: ?          OTHER DOSE:1500MG| 100MG;OTHER FREQUENCY:AM|PM;?
     Route: 048
     Dates: start: 202006

REACTIONS (1)
  - Drug ineffective [None]
